FAERS Safety Report 23120721 (Version 1)
Quarter: 2023Q4

REPORT INFORMATION
  Report Type: Spontaneous
  Country: US (occurrence: US)
  Receive Date: 20231029
  Receipt Date: 20231029
  Transmission Date: 20240110
  Serious: No
  Sender: FDA-Public Use
  Company Number: US-TEVA-2023-US-2937505

PATIENT
  Age: 73 Year
  Sex: Male

DRUGS (2)
  1. CLONAZEPAM [Suspect]
     Active Substance: CLONAZEPAM
     Indication: Panic disorder
     Dosage: .5 MILLIGRAM DAILY;
     Route: 065
  2. CLONAZEPAM [Suspect]
     Active Substance: CLONAZEPAM
     Indication: Anxiety
     Dosage: 1 MILLIGRAM DAILY;
     Route: 065

REACTIONS (3)
  - Headache [Unknown]
  - Oral discomfort [Unknown]
  - Product use in unapproved indication [Unknown]
